FAERS Safety Report 17847406 (Version 1)
Quarter: 2020Q2

REPORT INFORMATION
  Report Type: Spontaneous
  Country: CO (occurrence: CO)
  Receive Date: 20200601
  Receipt Date: 20200601
  Transmission Date: 20200714
  Serious: Yes (Other)
  Sender: FDA-Public Use
  Company Number: CO-PFIZER INC-2019423452

PATIENT
  Age: 64 Year
  Sex: Female

DRUGS (4)
  1. REAMPLA [Suspect]
     Active Substance: PALBOCICLIB
     Dosage: 125 MG, CYCLIC (21 DAYS AND REST 7 DAYS)
     Route: 048
     Dates: start: 201908
  2. REAMPLA [Suspect]
     Active Substance: PALBOCICLIB
     Indication: BREAST CANCER METASTATIC
     Dosage: 125 MG, CYCLIC (21 DAYS AND REST 7 DAYS)
     Route: 048
     Dates: start: 20190901, end: 2019
  3. FULVESTRANT. [Concomitant]
     Active Substance: FULVESTRANT
     Dosage: CYCLIC (ON DAY 7, 14 AND 28)
  4. ZOLEDRONIC ACID [Concomitant]
     Active Substance: ZOLEDRONIC ACID
     Dosage: UNK

REACTIONS (12)
  - Dermatitis allergic [Unknown]
  - Migraine [Recovered/Resolved]
  - Neutropenia [Unknown]
  - Leukopenia [Unknown]
  - Headache [Recovered/Resolved]
  - Neoplasm progression [Unknown]
  - Urticaria [Unknown]
  - Nausea [Recovered/Resolved]
  - Pruritus [Unknown]
  - Immunosuppression [Recovered/Resolved]
  - Movement disorder [Unknown]
  - Product prescribing error [Unknown]

NARRATIVE: CASE EVENT DATE: 2019
